FAERS Safety Report 23465857 (Version 1)
Quarter: 2024Q1

REPORT INFORMATION
  Report Type: Spontaneous
  Country: DE (occurrence: DE)
  Receive Date: 20240201
  Receipt Date: 20240201
  Transmission Date: 20240410
  Serious: Yes (Hospitalization)
  Sender: FDA-Public Use
  Company Number: DE-JNJFOC-20240152797

PATIENT
  Age: 80 Year
  Sex: Male
  Weight: 84 kg

DRUGS (53)
  1. DEXAMETHASONE [Suspect]
     Active Substance: DEXAMETHASONE
     Dosage: 15 MG
     Route: 048
     Dates: start: 20230711
  2. DEXAMETHASONE [Suspect]
     Active Substance: DEXAMETHASONE
     Dosage: 15 MG
     Route: 048
     Dates: start: 20230725
  3. DEXAMETHASONE [Suspect]
     Active Substance: DEXAMETHASONE
     Indication: Product used for unknown indication
     Dosage: 20 MG
     Route: 048
     Dates: start: 20230822
  4. DEXAMETHASONE [Suspect]
     Active Substance: DEXAMETHASONE
     Dosage: 20 MG
     Route: 048
     Dates: start: 20230314
  5. DEXAMETHASONE [Suspect]
     Active Substance: DEXAMETHASONE
     Dosage: 20 MG
     Route: 048
     Dates: start: 20230321
  6. DEXAMETHASONE [Suspect]
     Active Substance: DEXAMETHASONE
     Dosage: 20 MG
     Route: 048
     Dates: start: 20230328
  7. DEXAMETHASONE [Suspect]
     Active Substance: DEXAMETHASONE
     Dosage: 20 MG
     Route: 048
     Dates: start: 20230405
  8. DEXAMETHASONE [Suspect]
     Active Substance: DEXAMETHASONE
     Dosage: 20 MG
     Route: 048
     Dates: start: 20230411
  9. DEXAMETHASONE [Suspect]
     Active Substance: DEXAMETHASONE
     Dosage: 20 MG
     Route: 048
     Dates: start: 20230418
  10. DEXAMETHASONE [Suspect]
     Active Substance: DEXAMETHASONE
     Dosage: 20 MG
     Route: 048
     Dates: start: 20230425
  11. DEXAMETHASONE [Suspect]
     Active Substance: DEXAMETHASONE
     Dosage: 20 MG
     Route: 048
     Dates: start: 20230502
  12. DEXAMETHASONE [Suspect]
     Active Substance: DEXAMETHASONE
     Dosage: 20 MG
     Route: 048
     Dates: start: 20230516
  13. DEXAMETHASONE [Suspect]
     Active Substance: DEXAMETHASONE
     Dosage: 20 MG
     Route: 048
     Dates: start: 20230530
  14. DEXAMETHASONE [Suspect]
     Active Substance: DEXAMETHASONE
     Dosage: 20 MG
     Route: 048
     Dates: start: 20230613
  15. DEXAMETHASONE [Suspect]
     Active Substance: DEXAMETHASONE
     Dosage: 20 MG
     Route: 048
     Dates: start: 20230808
  16. DEXAMETHASONE [Suspect]
     Active Substance: DEXAMETHASONE
     Dosage: 20 MG
     Route: 048
     Dates: start: 20230905
  17. DEXAMETHASONE [Suspect]
     Active Substance: DEXAMETHASONE
     Dosage: 20 MG
     Route: 048
     Dates: start: 20231002
  18. DEXAMETHASONE [Suspect]
     Active Substance: DEXAMETHASONE
     Dosage: 20 MG
     Route: 048
     Dates: start: 20231031
  19. DEXAMETHASONE [Suspect]
     Active Substance: DEXAMETHASONE
     Dosage: 20 MG
     Route: 048
     Dates: start: 20231128
  20. DEXAMETHASONE [Suspect]
     Active Substance: DEXAMETHASONE
     Dosage: 20 MG
     Route: 048
     Dates: start: 20240105
  21. DARATUMUMAB [Suspect]
     Active Substance: DARATUMUMAB
     Dosage: 16 MG/KG
     Route: 041
     Dates: start: 20230321
  22. DARATUMUMAB [Suspect]
     Active Substance: DARATUMUMAB
     Dosage: 16 MG/KG
     Route: 041
     Dates: start: 20230516
  23. DARATUMUMAB [Suspect]
     Active Substance: DARATUMUMAB
     Dosage: 16 MG/KG
     Route: 041
     Dates: start: 20230711
  24. DARATUMUMAB [Suspect]
     Active Substance: DARATUMUMAB
     Dosage: 16 MG/KG
     Route: 041
     Dates: start: 20231002
  25. DARATUMUMAB [Suspect]
     Active Substance: DARATUMUMAB
     Indication: Plasma cell myeloma
     Dosage: 1800 MG
     Route: 058
     Dates: start: 20230405
  26. DARATUMUMAB [Suspect]
     Active Substance: DARATUMUMAB
     Dosage: 1800 MG
     Route: 058
     Dates: start: 20230328
  27. DARATUMUMAB [Suspect]
     Active Substance: DARATUMUMAB
     Dosage: 1800 MG
     Route: 058
     Dates: start: 20230411
  28. DARATUMUMAB [Suspect]
     Active Substance: DARATUMUMAB
     Dosage: 1800 MG
     Route: 058
     Dates: start: 20230418
  29. DARATUMUMAB [Suspect]
     Active Substance: DARATUMUMAB
     Dosage: 1800 MG
     Route: 058
     Dates: start: 20230425
  30. DARATUMUMAB [Suspect]
     Active Substance: DARATUMUMAB
     Dosage: 1800 MG
     Route: 058
     Dates: start: 20230502
  31. DARATUMUMAB [Suspect]
     Active Substance: DARATUMUMAB
     Dosage: 1800 MG
     Route: 058
     Dates: start: 20230613
  32. DARATUMUMAB [Suspect]
     Active Substance: DARATUMUMAB
     Dosage: 1800 MG
     Route: 058
     Dates: start: 20230725
  33. DARATUMUMAB [Suspect]
     Active Substance: DARATUMUMAB
     Dosage: 1800 MG
     Route: 058
     Dates: start: 20230808
  34. DARATUMUMAB [Suspect]
     Active Substance: DARATUMUMAB
     Dosage: 1800 MG
     Route: 058
     Dates: start: 20230822
  35. DARATUMUMAB [Suspect]
     Active Substance: DARATUMUMAB
     Dosage: 1800 MG
     Route: 058
     Dates: start: 20230905
  36. DARATUMUMAB [Suspect]
     Active Substance: DARATUMUMAB
     Dosage: 1800 MG
     Route: 058
     Dates: start: 20231031
  37. DARATUMUMAB [Suspect]
     Active Substance: DARATUMUMAB
     Dosage: 1800 MG
     Route: 058
     Dates: start: 20231128
  38. DARATUMUMAB [Suspect]
     Active Substance: DARATUMUMAB
     Dosage: 1800 MG
     Route: 058
     Dates: start: 20240105
  39. DARATUMUMAB [Suspect]
     Active Substance: DARATUMUMAB
     Dosage: 8 MG/KG, Q4W
     Route: 058
     Dates: start: 20230314
  40. LENALIDOMIDE [Suspect]
     Active Substance: LENALIDOMIDE
     Dosage: 10 MG
     Route: 048
     Dates: start: 20231002, end: 20231022
  41. LENALIDOMIDE [Suspect]
     Active Substance: LENALIDOMIDE
     Dosage: 10 MG
     Route: 048
     Dates: start: 20231021, end: 20231120
  42. LENALIDOMIDE [Suspect]
     Active Substance: LENALIDOMIDE
     Dosage: 10 MG
     Route: 048
     Dates: start: 20231128, end: 20231218
  43. LENALIDOMIDE [Suspect]
     Active Substance: LENALIDOMIDE
     Dosage: 10 MG
     Route: 048
     Dates: start: 20240105, end: 20240109
  44. LENALIDOMIDE [Suspect]
     Active Substance: LENALIDOMIDE
     Indication: Plasma cell myeloma
     Dosage: 15 MG
     Route: 048
     Dates: start: 20230808, end: 20230828
  45. LENALIDOMIDE [Suspect]
     Active Substance: LENALIDOMIDE
     Dosage: 15 MG
     Route: 048
     Dates: start: 20230516, end: 20230605
  46. LENALIDOMIDE [Suspect]
     Active Substance: LENALIDOMIDE
     Dosage: 15 MG
     Route: 048
     Dates: start: 20230613, end: 20230703
  47. LENALIDOMIDE [Suspect]
     Active Substance: LENALIDOMIDE
     Dosage: 15 MG
     Route: 048
     Dates: start: 20230905, end: 20230925
  48. LENALIDOMIDE [Suspect]
     Active Substance: LENALIDOMIDE
     Dosage: 15 MG
     Route: 065
     Dates: start: 20230711, end: 20230731
  49. LENALIDOMIDE [Suspect]
     Active Substance: LENALIDOMIDE
     Dosage: 20 MG
     Route: 048
     Dates: start: 20230411, end: 20230501
  50. LENALIDOMIDE [Suspect]
     Active Substance: LENALIDOMIDE
     Dosage: 21 PER CYCLE
     Route: 048
     Dates: start: 20230314, end: 20230403
  51. CLEMASTINE [Concomitant]
     Active Substance: CLEMASTINE
     Indication: Prophylaxis
     Dosage: 2 MG
     Route: 041
     Dates: start: 20230314
  52. DENOSUMAB [Concomitant]
     Active Substance: DENOSUMAB
     Indication: Prophylaxis
     Dosage: 120 MG
     Route: 058
     Dates: start: 202301
  53. PREDNISOLONE [Concomitant]
     Active Substance: PREDNISOLONE
     Indication: Atrial fibrillation
     Dosage: 5 MG
     Route: 048
     Dates: start: 202201

REACTIONS (1)
  - Pneumonia respiratory syncytial viral [Recovered/Resolved]

NARRATIVE: CASE EVENT DATE: 20240112
